FAERS Safety Report 4988949-2 (Version None)
Quarter: 2006Q2

REPORT INFORMATION
  Report Type: 
  Country: None (occurrence: None)
  Receive Date: 20060425
  Receipt Date: 20060411
  Transmission Date: 20061013
  Serious: Yes (Hospitalization)
  Sender: FDA-Public Use
  Company Number: 2006S1003145

PATIENT
  Age: 63 Year
  Sex: Female
  Weight: 99.7913 kg

DRUGS (20)
  1. CEP-25608 [Suspect]
     Indication: BREAKTHROUGH PAIN
     Dosage: 200 UG; PRN; BUCCA
     Route: 002
     Dates: start: 20051212
  2. AMITRIPTYLINE HCL [Suspect]
     Indication: SLEEP DISORDER
     Dosage: 100 MG; HS; ORAL
     Route: 048
     Dates: start: 20060310, end: 20060321
  3. METHADONE HCL [Suspect]
     Indication: PAIN
     Dosage: 40 MG; TID; ORAL
     Route: 048
  4. HYDROCODONE BITARTRATE + ACETAMINOPHEN [Suspect]
     Indication: PAIN
     Dosage: 10 MG; QID; ORAL
     Route: 048
  5. FUROSEMIDE [Concomitant]
  6. POTASSIUM [Concomitant]
  7. ACETYLSALICYLIC ACID SRT [Concomitant]
  8. GLYBURIDE [Concomitant]
  9. DOCUSATE [Concomitant]
  10. LISINOPRIL [Concomitant]
  11. CARBAMAZEPINE [Concomitant]
  12. ROSIGLITAZONE MALEATE [Concomitant]
  13. INSULIN GLARGINE [Concomitant]
  14. CITALOPRAM HYDROBROMIDE [Concomitant]
  15. AMLODIPINE [Concomitant]
  16. METHOCARBAMOL [Concomitant]
  17. PARACETAMOL/HYDROCODONE BITARTRATE [Concomitant]
  18. GABAPENTIN [Concomitant]
  19. CLONAZEPAM [Concomitant]
  20. BUSPIRONE [Concomitant]

REACTIONS (6)
  - BLOOD POTASSIUM INCREASED [None]
  - BLOOD SODIUM DECREASED [None]
  - LETHARGY [None]
  - LISTLESS [None]
  - MENTAL STATUS CHANGES [None]
  - MIOSIS [None]
